FAERS Safety Report 6406096-X (Version None)
Quarter: 2009Q4

REPORT INFORMATION
  Report Type: 
  Country: None (occurrence: None)
  Receive Date: 20091019
  Receipt Date: 20091010
  Transmission Date: 20100525
  Serious: Yes (Other)
  Sender: FDA-Public Use
  Company Number: CA-ELI_LILLY_AND_COMPANY-CA200910002993

PATIENT
  Age: 81 Year
  Sex: Female

DRUGS (8)
  1. FORTEO [Suspect]
     Indication: OSTEOPOROSIS
     Dosage: 20 UG, DAILY (1/D)
     Route: 058
     Dates: start: 20091010
  2. METHOTREXATE [Concomitant]
  3. LEFLUNOMIDE [Concomitant]
  4. HYDRA-ZIDE [Concomitant]
     Dosage: 25 MG, DAILY (1/D)
  5. NEXIUM [Concomitant]
  6. BISOPROLOL [Concomitant]
     Dosage: 5 MG, DAILY (1/D)
  7. CALCIUM [Concomitant]
  8. VITAMIN D [Concomitant]

REACTIONS (5)
  - BLOOD PRESSURE IMMEASURABLE [None]
  - DIZZINESS [None]
  - LOSS OF CONSCIOUSNESS [None]
  - PALLOR [None]
  - UNRESPONSIVE TO STIMULI [None]
